FAERS Safety Report 5010668-7 (Version None)
Quarter: 2006Q2

REPORT INFORMATION
  Report Type: 
  Country: None (occurrence: None)
  Receive Date: 20060525
  Receipt Date: 20060517
  Transmission Date: 20061013
  Serious: Yes (Hospitalization, Other)
  Sender: FDA-Public Use
  Company Number: PHFR2006GB01767

PATIENT
  Age: 38 Year
  Sex: Male

DRUGS (1)
  1. CLOZARIL [Suspect]
     Indication: SCHIZOPHRENIA
     Route: 048
     Dates: start: 20030812

REACTIONS (4)
  - LOWER RESPIRATORY TRACT INFECTION [None]
  - MULTIPLE SCLEROSIS [None]
  - PERICARDITIS [None]
  - PLEURAL EFFUSION [None]
